FAERS Safety Report 6684061-5 (Version None)
Quarter: 2010Q2

REPORT INFORMATION
  Report Type: 
  Country: None (occurrence: None)
  Receive Date: 20100416
  Receipt Date: 20100408
  Transmission Date: 20101027
  Serious: Yes (Hospitalization)
  Sender: FDA-Public Use
  Company Number: FR-ASTRAZENECA-2010SE15474

PATIENT
  Age: 24617 Day
  Sex: Female

DRUGS (9)
  1. NEXIUM [Suspect]
     Route: 048
  2. COUMADIN [Interacting]
     Indication: HEART VALVE OPERATION
     Route: 048
     Dates: start: 19900101
  3. CITALOPRAM HYDROBROMIDE [Interacting]
     Route: 048
  4. DIGOXIN [Concomitant]
  5. LEXOMIL [Concomitant]
  6. ALDACTONE [Concomitant]
  7. PIASCLEDINE [Concomitant]
  8. LASIX [Concomitant]
  9. TENORMIN [Concomitant]

REACTIONS (3)
  - DRUG INTERACTION [None]
  - GASTROINTESTINAL HAEMORRHAGE [None]
  - INTERNATIONAL NORMALISED RATIO INCREASED [None]
